FAERS Safety Report 19351502 (Version 17)
Quarter: 2024Q4

REPORT INFORMATION
  Report Type: Spontaneous
  Country: US (occurrence: US)
  Receive Date: 20210531
  Receipt Date: 20241211
  Transmission Date: 20250115
  Serious: Yes (Other)
  Sender: PFIZER
  Company Number: US-PFIZER INC-2020337969

PATIENT
  Age: 72 Year
  Sex: Female

DRUGS (2)
  1. EUCRISA [Suspect]
     Active Substance: CRISABOROLE
     Dosage: UNK, 2X/DAY (APPLY A SMALL AMOUNT TWICE DAILY)
     Route: 061
  2. EUCRISA [Suspect]
     Active Substance: CRISABOROLE
     Dosage: UNK, 2X/DAY (APPLY A SMALL AMOUNT TO AFFECTED AREA TWICE DAILY AS DIRECTED)
     Route: 061

REACTIONS (11)
  - Shoulder fracture [Unknown]
  - Fall [Unknown]
  - Intentional product misuse [Unknown]
  - Product dose omission issue [Unknown]
  - Product prescribing error [Unknown]
  - Frustration tolerance decreased [Unknown]
  - Feeling abnormal [Unknown]
  - Pruritus [Unknown]
  - Stress [Not Recovered/Not Resolved]
  - Memory impairment [Unknown]
  - Condition aggravated [Recovering/Resolving]
